FAERS Safety Report 4997112-0 (Version None)
Quarter: 2006Q2

REPORT INFORMATION
  Report Type: 
  Country: None (occurrence: None)
  Receive Date: 20060508
  Receipt Date: 20060508
  Transmission Date: 20061013
  Serious: Yes (Other)
  Sender: FDA-Public Use
  Company Number: None

PATIENT
  Sex: Male
  Weight: 60.782 kg

DRUGS (2)
  1. AMBIEN [Suspect]
     Indication: INSOMNIA
     Dosage: 1 CCA 2X PER MONTH  BUCCAL
     Route: 002
  2. NAPROXEN [Suspect]
     Indication: ARTHRALGIA
     Dosage: 1 ALMOST EACH NIGHT BUCCAL  LAST 2-3 MONTHS
     Route: 002

REACTIONS (5)
  - ABNORMAL BEHAVIOUR [None]
  - ALCOHOL USE [None]
  - DIFFICULTY IN WALKING [None]
  - FEELING DRUNK [None]
  - LOSS OF CONSCIOUSNESS [None]
